FAERS Safety Report 6453995-9 (Version None)
Quarter: 2009Q4

REPORT INFORMATION
  Report Type: 
  Country: None (occurrence: None)
  Receive Date: 20091124
  Receipt Date: 20091118
  Transmission Date: 20100525
  Serious: Yes (Hospitalization, Congenital Anomaly)
  Sender: FDA-Public Use
  Company Number: A0681163A

PATIENT
  Sex: Female
  Weight: 3.9 kg

DRUGS (8)
  1. PAXIL [Suspect]
     Indication: ANXIETY
     Dosage: 20MG PER DAY
     Dates: start: 20010101, end: 20030101
  2. VITAMIN AND MINERAL PRENATAL SUPPLEMENT W/ FOLIC ACID CAP [Concomitant]
  3. FOLIC ACID [Concomitant]
  4. VITAMIN B6 [Concomitant]
  5. ANTIEMETIC [Concomitant]
  6. TYLENOL (CAPLET) [Concomitant]
  7. ZOLOFT [Concomitant]
  8. VISTARIL [Concomitant]

REACTIONS (3)
  - DRUG EXPOSURE DURING PREGNANCY [None]
  - LARYNGOMALACIA [None]
  - MULTIPLE CONGENITAL ABNORMALITIES [None]
